FAERS Safety Report 10057285 (Version 5)
Quarter: 2016Q1

REPORT INFORMATION
  Report Type: Spontaneous
  Country: US (occurrence: US)
  Receive Date: 20140403
  Receipt Date: 20160211
  Transmission Date: 20160525
  Serious: No
  Sender: FDA-Public Use
  Company Number: US-LUNDBECK-DKLU1098005

PATIENT
  Sex: Female

DRUGS (8)
  1. SABRIL [Suspect]
     Active Substance: VIGABATRIN
     Indication: INFANTILE SPASMS
     Route: 048
     Dates: start: 20140120
  2. TOPIRAMATE. [Concomitant]
     Active Substance: TOPIRAMATE
     Indication: PRODUCT USED FOR UNKNOWN INDICATION
     Route: 065
  3. SABRIL [Suspect]
     Active Substance: VIGABATRIN
     Indication: TONIC CONVULSION
  4. TEGRETOL [Concomitant]
     Active Substance: CARBAMAZEPINE
     Indication: PRODUCT USED FOR UNKNOWN INDICATION
     Route: 065
  5. CLONAZEPAM. [Concomitant]
     Active Substance: CLONAZEPAM
     Indication: PRODUCT USED FOR UNKNOWN INDICATION
     Route: 065
  6. DIAZEPAM. [Concomitant]
     Active Substance: DIAZEPAM
     Indication: PRODUCT USED FOR UNKNOWN INDICATION
     Route: 065
  7. SABRIL [Suspect]
     Active Substance: VIGABATRIN
     Indication: GENERALISED TONIC-CLONIC SEIZURE
     Route: 048
     Dates: start: 20140207
  8. SABRIL [Suspect]
     Active Substance: VIGABATRIN
     Indication: MYOCLONIC EPILEPSY

REACTIONS (8)
  - Influenza [Not Recovered/Not Resolved]
  - Fatigue [Unknown]
  - Head banging [Unknown]
  - Dizziness [Unknown]
  - Eye pruritus [Unknown]
  - Headache [Unknown]
  - Aggression [Unknown]
  - Abnormal behaviour [Unknown]
